FAERS Safety Report 10433782 (Version 1)
Quarter: 2014Q3

REPORT INFORMATION
  Report Type: Spontaneous
  Country: US (occurrence: None)
  Receive Date: 20140904
  Receipt Date: 20140904
  Transmission Date: 20150326
  Serious: Yes (Hospitalization)
  Sender: FDA-Public Use
  Company Number: None

PATIENT
  Age: 7 Year
  Sex: Male
  Weight: 38.7 kg

DRUGS (5)
  1. METHOTREXATE [Suspect]
     Active Substance: METHOTREXATE
     Dates: start: 20140820
  2. PREDNISONE. [Suspect]
     Active Substance: PREDNISONE
     Dates: start: 20140827
  3. VINCRISTINE SULFATE. [Suspect]
     Active Substance: VINCRISTINE SULFATE
     Dates: start: 20140820
  4. HYDROCORTISONE. [Suspect]
     Active Substance: HYDROCORTISONE
     Dates: start: 20140812
  5. CYCLOPTOSPHAMI [Suspect]
     Active Substance: CYCLOPHOSPHAMIDE
     Dates: start: 20140820

REACTIONS (4)
  - Haemodialysis [None]
  - Tumour lysis syndrome [None]
  - Pleural effusion [None]
  - Renal impairment [None]

NARRATIVE: CASE EVENT DATE: 20140822
